FAERS Safety Report 6677446-4 (Version None)
Quarter: 2010Q2

REPORT INFORMATION
  Report Type: 
  Country: None (occurrence: None)
  Receive Date: 20100412
  Receipt Date: 20100409
  Transmission Date: 20101027
  Serious: Yes (Congenital Anomaly)
  Sender: FDA-Public Use
  Company Number: A0681101A

PATIENT
  Sex: Female

DRUGS (3)
  1. PAXIL [Suspect]
     Indication: ANXIETY
     Dosage: 20MG PER DAY
     Dates: start: 20020201, end: 20030101
  2. VITAMIN TAB [Concomitant]
  3. INDERAL [Concomitant]

REACTIONS (3)
  - BICUSPID AORTIC VALVE [None]
  - CONGENITAL AORTIC STENOSIS [None]
  - DRUG EXPOSURE DURING PREGNANCY [None]
